FAERS Safety Report 6360624-1 (Version None)
Quarter: 2009Q3

REPORT INFORMATION
  Report Type: 
  Country: None (occurrence: None)
  Receive Date: 20090915
  Receipt Date: 20090901
  Transmission Date: 20100115
  Serious: Yes (Death)
  Sender: FDA-Public Use
  Company Number: 2009AL002610

PATIENT
  Sex: Female

DRUGS (26)
  1. DIGOXIN [Suspect]
     Dosage: PO
     Route: 048
     Dates: start: 20020401
  2. DIGOXIN [Suspect]
     Dosage: 0.25MG, PO
     Route: 048
     Dates: start: 20041029
  3. TOPROL-XL [Concomitant]
  4. TUSS-DS [Concomitant]
  5. DIAZEPAM [Concomitant]
  6. VICON FORTE [Concomitant]
  7. SPIRONO/HCTZ [Concomitant]
  8. FUROSEMIDE [Concomitant]
  9. ALTACE [Concomitant]
  10. LORAZEPAM [Concomitant]
  11. POTASSIUM CHLORIDE [Concomitant]
  12. NADOLOL [Concomitant]
  13. POLY-TUSSIN [Concomitant]
  14. VICA FORTE [Concomitant]
  15. ALPRAZOLAM [Concomitant]
  16. PROPO-N/APAP [Concomitant]
  17. CELEBREX [Concomitant]
  18. ZADITOR [Concomitant]
  19. METOLAZONE [Concomitant]
  20. WARFARIN [Concomitant]
  21. HYDROCO/IBU [Concomitant]
  22. BLEPHAMIDE [Concomitant]
  23. INDOMETHACIN [Concomitant]
  24. HYALURONATE [Concomitant]
  25. HYALAGAN [Concomitant]
  26. METFORMIN HCL [Concomitant]

REACTIONS (5)
  - ECONOMIC PROBLEM [None]
  - ILL-DEFINED DISORDER [None]
  - INJURY [None]
  - OSTEOARTHRITIS [None]
  - SURGERY [None]
